FAERS Safety Report 5699336-6 (Version None)
Quarter: 2008Q2

REPORT INFORMATION
  Report Type: 
  Country: None (occurrence: None)
  Receive Date: 20080404
  Receipt Date: 20080326
  Transmission Date: 20081010
  Serious: Yes (Hospitalization)
  Sender: FDA-Public Use
  Company Number: 2008-02072

PATIENT
  Age: 11 Year
  Sex: Female

DRUGS (2)
  1. BACLOFEN [Suspect]
     Indication: MUSCLE SPASTICITY
     Dosage: INTRATHECAL
     Route: 037
  2. CLORAZEPATE [Concomitant]

REACTIONS (10)
  - AGITATION [None]
  - CLONUS [None]
  - DRUG WITHDRAWAL SYNDROME [None]
  - HAEMODYNAMIC INSTABILITY [None]
  - HYPERHIDROSIS [None]
  - HYPERTENSION [None]
  - HYPERTONIA [None]
  - MUSCLE SPASTICITY [None]
  - TACHYCARDIA [None]
  - TREMOR [None]
